FAERS Safety Report 4674733-6 (Version None)
Quarter: 2005Q2

REPORT INFORMATION
  Report Type: 
  Country: None (occurrence: None)
  Receive Date: 20050526
  Receipt Date: 20050113
  Transmission Date: 20051028
  Serious: Yes (Hospitalization, Other)
  Sender: FDA-Public Use
  Company Number: PHEH2005US00884

PATIENT
  Age: 52 Year
  Sex: Male

DRUGS (7)
  1. GLEEVEC [Suspect]
     Indication: CHRONIC MYELOID LEUKAEMIA
     Dosage: 800 MG, QD
     Route: 048
     Dates: start: 20030814
  2. GLEEVEC [Suspect]
     Dosage: 600 MG, QD
     Dates: start: 20030101, end: 20030101
  3. GLEEVEC [Suspect]
     Dosage: 400 MG, QD
     Route: 048
     Dates: start: 20030814, end: 20030101
  4. ZOCOR [Concomitant]
     Indication: BLOOD CHOLESTEROL INCREASED
     Dosage: 40 MG, QD
     Route: 048
  5. ATENOLOL [Concomitant]
     Indication: BLOOD PRESSURE ABNORMAL
     Dosage: 50 MG, QD
     Route: 048
  6. ASPIRIN [Concomitant]
     Indication: CARDIOVASCULAR DISORDER
     Dosage: 0.5 DF, QD
     Route: 048
  7. PLAVIX [Concomitant]
     Route: 048
     Dates: start: 20041201

REACTIONS (5)
  - CHEST DISCOMFORT [None]
  - HYPOAESTHESIA ORAL [None]
  - INTERNATIONAL NORMALISED RATIO INCREASED [None]
  - PARAESTHESIA [None]
  - TRANSIENT ISCHAEMIC ATTACK [None]
